FAERS Safety Report 4941493-0 (Version None)
Quarter: 2006Q1

REPORT INFORMATION
  Report Type: 
  Country: None (occurrence: None)
  Receive Date: 20060313
  Receipt Date: 20060214
  Transmission Date: 20060701
  Serious: Yes (Hospitalization)
  Sender: FDA-Public Use
  Company Number: US-MERCK-0602USA04423

PATIENT
  Age: 69 Year
  Sex: Male

DRUGS (7)
  1. VIOXX [Suspect]
     Route: 048
     Dates: start: 20010918, end: 20040930
  2. COMBIVENT [Concomitant]
     Route: 065
     Dates: start: 20010101
  3. ISONIAZID [Concomitant]
     Indication: TUBERCULOSIS
     Route: 065
     Dates: start: 20010101
  4. PYRIDOXINE [Concomitant]
     Indication: TUBERCULOSIS
     Route: 065
     Dates: start: 20010101
  5. RIFAMPIN [Concomitant]
     Indication: TUBERCULOSIS
     Route: 065
     Dates: start: 20010101
  6. VIAGRA [Concomitant]
     Route: 065
     Dates: start: 20020101
  7. GENTAMICIN [Concomitant]
     Route: 065

REACTIONS (4)
  - BRADYCARDIA [None]
  - CEREBROVASCULAR ACCIDENT [None]
  - ISCHAEMIC CEREBRAL INFARCTION [None]
  - SINUS BRADYCARDIA [None]
